FAERS Safety Report 9375246 (Version 1)
Quarter: 2013Q2

REPORT INFORMATION
  Report Type: Spontaneous
  Country: CA (occurrence: CA)
  Receive Date: 20130628
  Receipt Date: 20130628
  Transmission Date: 20140414
  Serious: Yes (Death)
  Sender: FDA-Public Use
  Company Number: CA-UCBSA-089660

PATIENT
  Age: 27 Year
  Sex: Female

DRUGS (11)
  1. VIMPAT [Suspect]
  2. LEVETIRACETAM [Suspect]
  3. CLOBAZAM [Suspect]
  4. IMMUNE GLOBULIN [Suspect]
     Dosage: SOLUTION INTRAVENOUS
     Route: 042
  5. KETAMINE HYDROCHLORIDE [Suspect]
     Dosage: SOLUTION INTRAMUSCULAR
     Route: 030
  6. ISOFLURANE [Suspect]
     Dosage: LIQUID INHALATION
  7. MAGNESIUM [Suspect]
  8. MIDAZOLAM [Suspect]
     Dosage: SOLUTION INTRAMUSCULAR
     Route: 030
  9. OXCARBAZEPINE [Suspect]
  10. TOPIRAMATE [Suspect]
  11. VALPROIC ACID [Suspect]

REACTIONS (5)
  - Arrhythmia [Fatal]
  - Metabolic acidosis [Fatal]
  - Mitochondrial DNA mutation [Fatal]
  - Propofol infusion syndrome [Fatal]
  - Shock [Fatal]
